FAERS Safety Report 9262549 (Version 1)
Quarter: 2013Q2

REPORT INFORMATION
  Report Type: Report from Study
  Country: US (occurrence: US)
  Receive Date: 20130430
  Receipt Date: 20130430
  Transmission Date: 20140414
  Serious: Yes (Hospitalization)
  Sender: FDA-Public Use
  Company Number: US-ROCHE-1217301

PATIENT
  Age: 70 Year
  Sex: Female
  Weight: 64.92 kg

DRUGS (1)
  1. XELODA [Suspect]
     Indication: BREAST CANCER METASTATIC
     Dosage: EVERY MORNING 1000 MG AND EVERY EVENING 1500 MG
     Route: 048
     Dates: start: 20130313, end: 20130327

REACTIONS (5)
  - Renal impairment [Recovered/Resolved]
  - Diarrhoea [Recovered/Resolved]
  - Dehydration [Recovered/Resolved]
  - Decreased appetite [Recovered/Resolved]
  - Weight decreased [Recovered/Resolved]
